FAERS Safety Report 9518456 (Version 1)
Quarter: 2013Q1

REPORT INFORMATION
  Report Type: Spontaneous
  Country: US (occurrence: None)
  Receive Date: 20130305
  Receipt Date: 20130305
  Transmission Date: 20140127
  Serious: Yes (Other)
  Sender: FDA-Public Use
  Company Number: 163-21880-12121291

PATIENT
  Age: 70 Year
  Sex: Male

DRUGS (1)
  1. REVLIMID [Suspect]
     Dosage: 10 MG, 28 IN 28 D, PO
     Route: 048
     Dates: start: 20111116

REACTIONS (3)
  - Neuropathy peripheral [None]
  - Diarrhoea [None]
  - Constipation [None]
